FAERS Safety Report 9891675 (Version 1)
Quarter: 2014Q1

REPORT INFORMATION
  Report Type: Spontaneous
  Country: US (occurrence: None)
  Receive Date: 20140210
  Receipt Date: 20140210
  Transmission Date: 20141002
  Serious: Yes (Death)
  Sender: FDA-Public Use
  Company Number: 2014010134

PATIENT
  Age: 44 Year
  Sex: Male

DRUGS (3)
  1. ZOLPIDEM [Suspect]
  2. METHADONE (METHADONE) [Suspect]
  3. DIPHENHYDRAMINE [Suspect]

REACTIONS (2)
  - Exposure via ingestion [None]
  - Drug abuse [None]
